FAERS Safety Report 17114555 (Version 1)
Quarter: 2019Q4

REPORT INFORMATION
  Report Type: Spontaneous
  Country: FR (occurrence: FR)
  Receive Date: 20191205
  Receipt Date: 20191205
  Transmission Date: 20200122
  Serious: Yes (Hospitalization)
  Sender: FDA-Public Use
  Company Number: FR-ACCORD-163365

PATIENT
  Age: 69 Year
  Sex: Female
  Weight: 56 kg

DRUGS (15)
  1. TRAMADOL. [Concomitant]
     Active Substance: TRAMADOL
     Indication: PAIN
     Dosage: 1-0-1
     Route: 048
     Dates: end: 20191015
  2. DOLIPRANE [Concomitant]
     Active Substance: ACETAMINOPHEN
     Indication: PAIN
     Route: 048
  3. LORMETAZEPAM [Concomitant]
     Active Substance: LORMETAZEPAM
     Indication: ANXIETY
     Dosage: 0-0-2
     Route: 048
  4. DEXCHLORPHENIRAMINE MALEATE/GUAIFENESIN/PSEUDOEPHEDRINE SULFATE [Suspect]
     Active Substance: DEXCHLORPHENIRAMINE MALEATE\GUAIFENESIN\PSEUDOEPHEDRINE SULFATE
     Indication: PREMEDICATION
     Dosage: 3 / TREATMENT ON D1, D8 AND D15
     Route: 042
     Dates: start: 20190905, end: 20191010
  5. OMEPRAZOLE. [Concomitant]
     Active Substance: OMEPRAZOLE
     Indication: GASTROOESOPHAGEAL REFLUX DISEASE
     Dosage: 0-0-1
     Route: 048
     Dates: end: 20191015
  6. CARBOPLATIN ACCORD [Suspect]
     Active Substance: CARBOPLATIN
     Indication: BRONCHIAL CARCINOMA
     Dosage: 450 MG /CURE
     Route: 042
     Dates: start: 20190905, end: 20191010
  7. COTRIATEC [Concomitant]
     Active Substance: HYDROCHLOROTHIAZIDE\RAMIPRIL
     Indication: HYPERTENSION
     Dosage: 1-0-0
     Route: 048
  8. METHYLPREDNISOLONE MYLAN [Suspect]
     Active Substance: METHYLPREDNISOLONE
     Indication: PREMEDICATION
     Dosage: 60 MG 3 / TREATMENT ON D1, D8 AND D15
     Route: 042
     Dates: start: 20190905, end: 20191010
  9. ZYMAD [Concomitant]
     Active Substance: CHOLECALCIFEROL
     Indication: HYPOVITAMINOSIS
     Dosage: STRENGTH: 80 000 UI
     Route: 048
     Dates: end: 20191015
  10. PACLITAXEL ACCORD [Suspect]
     Active Substance: PACLITAXEL
     Indication: BRONCHIAL CARCINOMA
     Dosage: 3 / TREATMENT ON D1, D8, D15
     Route: 042
     Dates: start: 20190905, end: 20191010
  11. ZOPHREN [Suspect]
     Active Substance: ONDANSETRON
     Indication: PREMEDICATION
     Dosage: STRENGTH:  8 MG / 4 ML
     Route: 042
     Dates: start: 20190905, end: 20191010
  12. PROPRANOLOL [Concomitant]
     Active Substance: PROPRANOLOL HYDROCHLORIDE
     Indication: HYPERTENSION
     Dosage: 1-1-1
     Route: 048
  13. NIVESTIM [Concomitant]
     Active Substance: FILGRASTIM
     Indication: NEUTROPENIA
     Route: 058
     Dates: start: 20191012, end: 20191014
  14. PLAVIX [Concomitant]
     Active Substance: CLOPIDOGREL BISULFATE
     Indication: ARTERITIS
     Dosage: STRENGTH: 75 MG
     Route: 048
  15. VENLAFAXINE/VENLAFAXINE HYDROCHLORIDE [Concomitant]
     Active Substance: VENLAFAXINE HYDROCHLORIDE
     Indication: DEPRESSION
     Dosage: 1-0-1
     Route: 048

REACTIONS (1)
  - Palmar-plantar erythrodysaesthesia syndrome [Recovered/Resolved]

NARRATIVE: CASE EVENT DATE: 20191010
